FAERS Safety Report 12928020 (Version 1)
Quarter: 2016Q4

REPORT INFORMATION
  Report Type: Spontaneous
  Country: US (occurrence: US)
  Receive Date: 20161110
  Receipt Date: 20161110
  Transmission Date: 20170207
  Serious: Yes (Life-Threatening, Disabling, Other)
  Sender: FDA-Public Use
  Company Number: None

PATIENT
  Age: 62 Year
  Sex: Female
  Weight: 58.97 kg

DRUGS (4)
  1. CHANTIX [Suspect]
     Active Substance: VARENICLINE TARTRATE
     Indication: SMOKING CESSATION THERAPY
     Dosage: 1 0.5 FOR 7 DAYS THEN  BY MOUTH
     Route: 048
     Dates: start: 201508, end: 20160828
  2. WATER PILL [Concomitant]
     Active Substance: UNSPECIFIED INGREDIENT
  3. FISH OIL [Concomitant]
     Active Substance: FISH OIL
  4. PLAVIX [Concomitant]
     Active Substance: CLOPIDOGREL BISULFATE

REACTIONS (11)
  - Impaired work ability [None]
  - Loss of consciousness [None]
  - Tinnitus [None]
  - Vertigo [None]
  - Abnormal behaviour [None]
  - Rash [None]
  - Hypoacusis [None]
  - Homicidal ideation [None]
  - Cerebrovascular accident [None]
  - Suicidal ideation [None]
  - Cough [None]

NARRATIVE: CASE EVENT DATE: 201508
